FAERS Safety Report 16420978 (Version 1)
Quarter: 2019Q3

REPORT INFORMATION
  Report Type: Spontaneous
  Country: US (occurrence: US)
  Receive Date: 20190611
  Receipt Date: 20190611
  Transmission Date: 20191004
  Serious: Yes (Death, Life-Threatening, Hospitalization)
  Sender: FDA-Public Use
  Company Number: None

PATIENT
  Age: 83 Year
  Sex: Male
  Weight: 65.8 kg

DRUGS (1)
  1. XARELTO [Suspect]
     Active Substance: RIVAROXABAN
     Indication: THROMBOSIS PROPHYLAXIS
     Route: 048
     Dates: start: 20180825, end: 20180827

REACTIONS (11)
  - Haemorrhage intracranial [None]
  - Respiratory failure [None]
  - Pulmonary embolism [None]
  - Deep vein thrombosis [None]
  - Upper gastrointestinal haemorrhage [None]
  - Acute respiratory failure [None]
  - Anaemia [None]
  - Fall [None]
  - Acute myocardial infarction [None]
  - Atrial fibrillation [None]
  - Head injury [None]

NARRATIVE: CASE EVENT DATE: 20180827
